FAERS Safety Report 5914791-1 (Version None)
Quarter: 2008Q4

REPORT INFORMATION
  Report Type: 
  Country: None (occurrence: None)
  Receive Date: 20081008
  Receipt Date: 20080924
  Transmission Date: 20090506
  Serious: Yes (Other)
  Sender: FDA-Public Use
  Company Number: 08-508

PATIENT
  Age: 45 Year
  Sex: Female

DRUGS (1)
  1. ALEVE [Suspect]
     Indication: NECK PAIN
     Dosage: 440 MG, ONCE, ORAL
     Route: 048
     Dates: start: 20080903, end: 20080903

REACTIONS (14)
  - ABDOMINAL PAIN UPPER [None]
  - AURICULAR SWELLING [None]
  - DEPRESSED LEVEL OF CONSCIOUSNESS [None]
  - DYSPNOEA [None]
  - ERYTHEMA [None]
  - FALL [None]
  - FEELING HOT [None]
  - HYPERHIDROSIS [None]
  - HYPERSENSITIVITY [None]
  - LOSS OF CONTROL OF LEGS [None]
  - PRURITUS GENERALISED [None]
  - RASH GENERALISED [None]
  - SENSATION OF PRESSURE [None]
  - SWELLING [None]
